FAERS Safety Report 8798879 (Version 2)
Quarter: 2012Q4

REPORT INFORMATION
  Report Type: Report from Study
  Country: TH (occurrence: TH)
  Receive Date: 20120920
  Receipt Date: 20121011
  Transmission Date: 20130627
  Serious: Yes (Hospitalization)
  Sender: FDA-Public Use
  Company Number: TH-GLAXOSMITHKLINE-R0015004A

PATIENT
  Age: 24 Year
  Sex: Female
  Weight: 47.5 kg

DRUGS (4)
  1. UNSPECIFIED INGREDIENT [Suspect]
     Route: 030
     Dates: start: 20101123, end: 20101123
  2. ZIDOVUDINE [Suspect]
     Indication: LENTIVIRUS TEST POSITIVE
     Dosage: 400MG per day
     Route: 048
     Dates: start: 20050913
  3. EPIVIR [Concomitant]
     Indication: LENTIVIRUS TEST POSITIVE
     Dosage: 300MG per day
     Route: 048
     Dates: start: 20040218
  4. EFAVIRENZ [Concomitant]
     Indication: LENTIVIRUS TEST POSITIVE
     Dosage: 600MG per day
     Route: 048
     Dates: start: 20071114

REACTIONS (1)
  - Appendicitis [Recovered/Resolved]
